FAERS Safety Report 9445086 (Version 1)
Quarter: 2013Q3

REPORT INFORMATION
  Report Type: Spontaneous
  Country: US (occurrence: US)
  Receive Date: 20130807
  Receipt Date: 20130807
  Transmission Date: 20140515
  Serious: Yes (Other)
  Sender: FDA-Public Use
  Company Number: US-NICOBRDEVP-2013-13404

PATIENT
  Sex: Female

DRUGS (2)
  1. ALENDRONATE SODIUM (WATSON LABORATORIES) [Suspect]
     Indication: OSTEOPOROSIS
     Dosage: ^AS PRESCRIBED AND IN FORESEEABLE MANNER^
     Route: 048
     Dates: start: 200903, end: 201012
  2. FOSAMAX [Suspect]
     Indication: OSTEOPOROSIS
     Dosage: ^AS PRESCRIBED AND IN FORESEEABLE MANNER^
     Route: 048
     Dates: start: 200903, end: 201012

REACTIONS (3)
  - Bone disorder [Unknown]
  - Skeletal injury [Unknown]
  - Femur fracture [Unknown]
